FAERS Safety Report 7197789-8 (Version None)
Quarter: 2010Q4

REPORT INFORMATION
  Report Type: 
  Country: None (occurrence: None)
  Receive Date: 20101208
  Receipt Date: 20101203
  Transmission Date: 20110411
  Serious: Yes (Life-Threatening, Other)
  Sender: FDA-Public Use
  Company Number: 2010SP063185

PATIENT
  Age: 26 Year
  Sex: Female
  Weight: 169 kg

DRUGS (1)
  1. NUVARING [Suspect]
     Indication: PRODUCT USED FOR UNKNOWN INDICATION
     Dosage: ;VAG
     Route: 067

REACTIONS (2)
  - CERVICAL DYSPLASIA [None]
  - CERVIX CARCINOMA [None]
